FAERS Safety Report 12653535 (Version 2)
Quarter: 2016Q3

REPORT INFORMATION
  Report Type: Spontaneous
  Country: US (occurrence: US)
  Receive Date: 20160815
  Receipt Date: 20160923
  Transmission Date: 20161109
  Serious: Yes (Hospitalization, Other)
  Sender: FDA-Public Use
  Company Number: US-ASTRAZENECA-2016SE68841

PATIENT
  Age: 699 Month
  Sex: Female
  Weight: 78.5 kg

DRUGS (34)
  1. LISINOPRIL. [Suspect]
     Active Substance: LISINOPRIL
     Indication: BLOOD CHOLESTEROL ABNORMAL
     Dosage: 10.0MG UNKNOWN
     Route: 048
  2. SIROLIMUS. [Suspect]
     Active Substance: SIROLIMUS
     Indication: GLAUCOMA
     Dosage: GENERIC  0.5 MG DAILY
     Route: 048
     Dates: start: 20150105
  3. ESTER C [Concomitant]
  4. TIMOPTIC [Concomitant]
     Active Substance: TIMOLOL MALEATE
  5. PYRIDOXINE HYDROCHLORIDE. [Concomitant]
     Active Substance: PYRIDOXINE HYDROCHLORIDE
  6. THIAMINE HYDROCHLORIDE. [Concomitant]
     Active Substance: THIAMINE HYDROCHLORIDE
  7. SIMVASTATIN. [Suspect]
     Active Substance: SIMVASTATIN
     Indication: BLOOD CHOLESTEROL ABNORMAL
     Dosage: 20.0MG UNKNOWN
     Route: 065
     Dates: start: 20160526, end: 201607
  8. SIROLIMUS. [Suspect]
     Active Substance: SIROLIMUS
     Indication: GLAUCOMA
     Dosage: 0.5MG UNKNOWN
     Route: 048
     Dates: start: 201503
  9. LISINOPRIL. [Suspect]
     Active Substance: LISINOPRIL
     Indication: BLOOD CHOLESTEROL ABNORMAL
     Dosage: 15.0MG UNKNOWN
     Route: 048
  10. OMEPRAZOLE. [Suspect]
     Active Substance: OMEPRAZOLE
     Indication: GASTROOESOPHAGEAL REFLUX DISEASE
     Dosage: 20.0MG UNKNOWN
     Route: 048
  11. SIROLIMUS. [Suspect]
     Active Substance: SIROLIMUS
     Indication: GLAUCOMA
     Dosage: GENERIC  1 MG DAILY
     Route: 048
     Dates: start: 20150227
  12. SIROLIMUS. [Suspect]
     Active Substance: SIROLIMUS
     Indication: DIARRHOEA
     Dosage: 0.5MG UNKNOWN
     Route: 048
     Dates: start: 201503
  13. SIROLIMUS. [Suspect]
     Active Substance: SIROLIMUS
     Indication: LYMPHANGIOLEIOMYOMATOSIS
     Dosage: 1.0MG UNKNOWN
     Route: 048
     Dates: start: 20160705
  14. CRESTOR [Suspect]
     Active Substance: ROSUVASTATIN CALCIUM
     Indication: BLOOD CHOLESTEROL ABNORMAL
     Dosage: 5.0MG UNKNOWN
     Route: 048
     Dates: start: 201503, end: 201605
  15. OMEPRAZOLE. [Suspect]
     Active Substance: OMEPRAZOLE
     Indication: BLOOD CHOLESTEROL ABNORMAL
     Dosage: 20.0MG UNKNOWN
     Route: 048
  16. RETINOL [Concomitant]
     Active Substance: RETINOL
  17. TOCOPHERYL ACETATE [Concomitant]
     Active Substance: .ALPHA.-TOCOPHEROL ACETATE
  18. SIROLIMUS. [Suspect]
     Active Substance: SIROLIMUS
     Indication: LYMPHANGIOLEIOMYOMATOSIS
     Dosage: GENERIC  0.5 MG DAILY
     Route: 048
     Dates: start: 20150105
  19. ASPIRIN. [Concomitant]
     Active Substance: ASPIRIN
  20. DEXPANTHENOL. [Concomitant]
     Active Substance: DEXPANTHENOL
  21. SIMVASTATIN. [Suspect]
     Active Substance: SIMVASTATIN
     Indication: BLOOD CHOLESTEROL ABNORMAL
     Dosage: 10.0MG UNKNOWN
     Route: 065
     Dates: start: 201502, end: 201503
  22. SIROLIMUS. [Suspect]
     Active Substance: SIROLIMUS
     Indication: LYMPHANGIOLEIOMYOMATOSIS
     Dosage: GENERIC  1 MG DAILY
     Route: 048
     Dates: start: 20150227
  23. SIROLIMUS. [Suspect]
     Active Substance: SIROLIMUS
     Indication: DIARRHOEA
     Dosage: GENERIC  1 MG DAILY
     Route: 048
     Dates: start: 20150227
  24. SIROLIMUS. [Suspect]
     Active Substance: SIROLIMUS
     Indication: GLAUCOMA
     Dosage: 1.0MG UNKNOWN
     Route: 048
     Dates: start: 20160705
  25. VITAMIN E [Concomitant]
     Active Substance: .ALPHA.-TOCOPHEROL
  26. VITAMIN D [Concomitant]
     Active Substance: CHOLECALCIFEROL
  27. NICOTINAMIDE [Concomitant]
     Active Substance: NIACINAMIDE
  28. LISINOPRIL. [Suspect]
     Active Substance: LISINOPRIL
     Indication: BLOOD CHOLESTEROL ABNORMAL
     Dosage: 20.0MG UNKNOWN
     Route: 048
  29. SIROLIMUS. [Suspect]
     Active Substance: SIROLIMUS
     Indication: LYMPHANGIOLEIOMYOMATOSIS
     Dosage: 0.5MG UNKNOWN
     Route: 048
     Dates: start: 201503
  30. TIMOLOL MALEATE. [Concomitant]
     Active Substance: TIMOLOL MALEATE
  31. SIROLIMUS. [Suspect]
     Active Substance: SIROLIMUS
     Indication: DIARRHOEA
     Dosage: GENERIC  0.5 MG DAILY
     Route: 048
     Dates: start: 20150105
  32. SIROLIMUS. [Suspect]
     Active Substance: SIROLIMUS
     Indication: DIARRHOEA
     Dosage: 1.0MG UNKNOWN
     Route: 048
     Dates: start: 20160705
  33. ASCORBIC ACID. [Concomitant]
     Active Substance: ASCORBIC ACID
  34. RIBOFLAVIN [Concomitant]
     Active Substance: RIBOFLAVIN

REACTIONS (14)
  - Swelling [Unknown]
  - Intraocular pressure increased [Not Recovered/Not Resolved]
  - Anal incontinence [Not Recovered/Not Resolved]
  - Chills [Unknown]
  - Blood cholesterol increased [Not Recovered/Not Resolved]
  - Diarrhoea [Not Recovered/Not Resolved]
  - Malaise [Not Recovered/Not Resolved]
  - Drug ineffective [Not Recovered/Not Resolved]
  - Headache [Recovered/Resolved]
  - Glaucoma [Not Recovered/Not Resolved]
  - Hypertension [Not Recovered/Not Resolved]
  - Swelling face [Recovered/Resolved]
  - Fatigue [Unknown]
  - Gastrooesophageal reflux disease [Unknown]

NARRATIVE: CASE EVENT DATE: 201302
